FAERS Safety Report 8019277-9 (Version None)
Quarter: 2012Q1

REPORT INFORMATION
  Report Type: 
  Country: None (occurrence: None)
  Receive Date: 20120103
  Receipt Date: 20111223
  Transmission Date: 20120608
  Serious: Yes (Other)
  Sender: FDA-Public Use
  Company Number: US-BAYER-2011-044945

PATIENT
  Age: 27 Year
  Sex: Female
  Weight: 61 kg

DRUGS (7)
  1. YASMIN [Suspect]
     Indication: CONTRACEPTION
     Dosage: UNK
     Dates: start: 20020601, end: 20060601
  2. LEXAPRO [Concomitant]
     Dosage: 20 MG, QD
     Route: 048
  3. YAZ [Suspect]
     Indication: CONTRACEPTION
     Dosage: UNK
     Route: 048
     Dates: start: 20060601, end: 20081001
  4. PROTONIX [Concomitant]
     Dosage: 40 MG, QD
  5. PREVACID [Concomitant]
     Dosage: 30 MG, QD
     Route: 048
  6. SINGULAIR [Concomitant]
     Indication: ASTHMA
     Dosage: UNK UNK, QD
     Route: 048
     Dates: start: 20030101, end: 20090101
  7. ALLEGRA-D 12 HOUR [Concomitant]
     Indication: ASTHMA
     Dosage: UNK UNK, BID
     Route: 048
     Dates: start: 20030101

REACTIONS (12)
  - CHOLECYSTITIS CHRONIC [None]
  - PAIN [None]
  - PSYCHOLOGICAL TRAUMA [None]
  - VOMITING [None]
  - DIARRHOEA [None]
  - ANHEDONIA [None]
  - BILIARY DYSKINESIA [None]
  - POST CHOLECYSTECTOMY SYNDROME [None]
  - WEIGHT DECREASED [None]
  - ANXIETY [None]
  - GASTROINTESTINAL DISORDER [None]
  - GALLBLADDER DISORDER [None]
